FAERS Safety Report 21285108 (Version 3)
Quarter: 2022Q4

REPORT INFORMATION
  Report Type: Spontaneous
  Country: CA (occurrence: CA)
  Receive Date: 20220902
  Receipt Date: 20221006
  Transmission Date: 20230113
  Serious: Yes (Other)
  Sender: FDA-Public Use
  Company Number: CA-CELLTRION INC.-2021CA015014

PATIENT

DRUGS (12)
  1. INFLECTRA [Suspect]
     Active Substance: INFLIXIMAB-DYYB
     Indication: Rheumatoid arthritis
     Dosage: 400 MG EVERY 5 WEEKS
     Route: 042
     Dates: start: 20191210
  2. INFLECTRA [Suspect]
     Active Substance: INFLIXIMAB-DYYB
     Dosage: 300 MG EVERY 5 WEEKS
     Route: 042
     Dates: start: 20210728
  3. INFLECTRA [Suspect]
     Active Substance: INFLIXIMAB-DYYB
     Dosage: 400 MG EVERY 5 WEEKS
     Route: 042
     Dates: start: 20220120
  4. INFLECTRA [Suspect]
     Active Substance: INFLIXIMAB-DYYB
     Dosage: 400 MG EVERY 5 WEEKS
     Route: 042
     Dates: start: 20220308
  5. INFLECTRA [Suspect]
     Active Substance: INFLIXIMAB-DYYB
     Dosage: 400 MG EVERY 5 WEEKS
     Route: 042
     Dates: start: 20220622
  6. INFLECTRA [Suspect]
     Active Substance: INFLIXIMAB-DYYB
     Dosage: 400 MG EVERY 5 WEEKS
     Route: 042
     Dates: start: 20220817, end: 20220817
  7. AZATHIOPRINE [Concomitant]
     Active Substance: AZATHIOPRINE
     Dosage: UNK
  8. AZATHIOPRINE [Concomitant]
     Active Substance: AZATHIOPRINE
     Dosage: 50 MG, DAILY
  9. ATENOLOL [Concomitant]
     Active Substance: ATENOLOL
     Dosage: 1 DF
  10. ASPIRIN [Concomitant]
     Active Substance: ASPIRIN
     Dosage: 1 DF
  11. IMURAN [Concomitant]
     Active Substance: AZATHIOPRINE
     Dosage: 1 DF
  12. ATORVASTATIN CALCIUM [Concomitant]
     Active Substance: ATORVASTATIN CALCIUM
     Dosage: UNK

REACTIONS (16)
  - Rheumatoid arthritis-associated interstitial lung disease [Not Recovered/Not Resolved]
  - Pulmonary fibrosis [Not Recovered/Not Resolved]
  - Disease progression [Not Recovered/Not Resolved]
  - Off label use [Unknown]
  - Off label use [Unknown]
  - Product dose omission issue [Unknown]
  - Incorrect dosage administered [Unknown]
  - Inappropriate schedule of product administration [Unknown]
  - Illness [Unknown]
  - Malaise [Not Recovered/Not Resolved]
  - Nasopharyngitis [Not Recovered/Not Resolved]
  - Cough [Recovered/Resolved]
  - Influenza [Recovering/Resolving]
  - Hypersensitivity [Recovering/Resolving]
  - Influenza like illness [Recovering/Resolving]
  - Pain in extremity [Not Recovered/Not Resolved]

NARRATIVE: CASE EVENT DATE: 20191210
